FAERS Safety Report 4512027-X (Version None)
Quarter: 2004Q4

REPORT INFORMATION
  Report Type: 
  Country: None (occurrence: None)
  Receive Date: 20041123
  Receipt Date: 20041115
  Transmission Date: 20050328
  Serious: No
  Sender: FDA-Public Use
  Company Number: 210196

PATIENT
  Age: 57 Year
  Sex: Male

DRUGS (4)
  1. AVASTIN [Suspect]
     Indication: COLORECTAL CANCER METASTATIC
     Dosage: 380 MG, Q2W, INTRAVENOUS
     Route: 042
     Dates: start: 20040714, end: 20040908
  2. LEUCOVORIN (LEUCOVORIN CALCIUM) [Concomitant]
  3. FLUOROURACIL [Concomitant]
  4. IRINOTECAN HCL [Concomitant]

REACTIONS (1)
  - MUCOSAL INFLAMMATION [None]
